FAERS Safety Report 5519084-2 (Version None)
Quarter: 2007Q4

REPORT INFORMATION
  Report Type: 
  Country: None (occurrence: None)
  Receive Date: 20071116
  Receipt Date: 20071105
  Transmission Date: 20080405
  Serious: Yes (Hospitalization)
  Sender: FDA-Public Use
  Company Number: US-JNJFOC-20070803572

PATIENT
  Sex: Female
  Weight: 83.92 kg

DRUGS (7)
  1. FENTANYL TRANSDERMAL SYSTEM [Suspect]
     Indication: PAIN
     Route: 062
  2. FENTANYL TRANSDERMAL SYSTEM [Suspect]
     Route: 062
  3. FENTANYL TRANSDERMAL SYSTEM [Suspect]
     Route: 062
  4. FENTANYL TRANSDERMAL SYSTEM [Suspect]
     Route: 062
  5. FENTANYL TRANSDERMAL SYSTEM [Suspect]
     Indication: PAIN
     Route: 062
  6. ALBUTEROL [Concomitant]
     Indication: ASTHMA
     Dosage: 2 PUFFS FOUR TIMES A DAY
     Route: 055
  7. SINGULAIR [Concomitant]
     Indication: ASTHMA
     Route: 048

REACTIONS (10)
  - APPLICATION SITE PRURITUS [None]
  - APPLICATION SITE RASH [None]
  - CEREBROVASCULAR ACCIDENT [None]
  - COMPLEX REGIONAL PAIN SYNDROME [None]
  - DEPRESSION [None]
  - HEART RATE IRREGULAR [None]
  - HIP SURGERY [None]
  - HYPERTENSION [None]
  - INSOMNIA [None]
  - INTRACARDIAC THROMBUS [None]
